FAERS Safety Report 9100282 (Version 1)
Quarter: 2013Q1

REPORT INFORMATION
  Report Type: Spontaneous
  Country: US (occurrence: US)
  Receive Date: 20130215
  Receipt Date: 20130215
  Transmission Date: 20140127
  Serious: Yes (Other)
  Sender: FDA-Public Use
  Company Number: US-PFIZER INC-2013059235

PATIENT
  Sex: Male

DRUGS (3)
  1. MORPHINE SULFATE [Suspect]
     Dosage: UNK
     Route: 065
  2. OXYCODONE HYDROCHLORIDE [Suspect]
     Indication: PAIN
     Dosage: 20-40MG, Q6H
     Route: 048
  3. OXYCONTIN [Suspect]
     Indication: PAIN
     Dosage: 80 MG, 3X/DAY
     Route: 048

REACTIONS (1)
  - Drug abuse [Unknown]
